FAERS Safety Report 25090194 (Version 7)
Quarter: 2025Q2

REPORT INFORMATION
  Report Type: Spontaneous
  Country: US (occurrence: US)
  Receive Date: 20250318
  Receipt Date: 20250422
  Transmission Date: 20250717
  Serious: Yes (Life-Threatening, Hospitalization, Other)
  Sender: PFIZER
  Company Number: US-PFIZER INC-PV202500031995

PATIENT
  Age: 58 Year
  Sex: Female
  Weight: 108 kg

DRUGS (10)
  1. PAXLOVID [Interacting]
     Active Substance: NIRMATRELVIR\RITONAVIR
     Indication: COVID-19 treatment
  2. VERAPAMIL HCL [Interacting]
     Active Substance: VERAPAMIL HYDROCHLORIDE
     Indication: Migraine prophylaxis
     Dosage: 180 MG, 2X/DAY
  3. VERAPAMIL HCL [Interacting]
     Active Substance: VERAPAMIL HYDROCHLORIDE
     Indication: Hypertension
  4. FUROSEMIDE [Concomitant]
     Active Substance: FUROSEMIDE
     Indication: Peripheral swelling
     Dosage: 40 MG, DAILY
  5. FUROSEMIDE [Concomitant]
     Active Substance: FUROSEMIDE
  6. SPIRONOLACTONE [Concomitant]
     Active Substance: SPIRONOLACTONE
  7. LACTULOSE [Concomitant]
     Active Substance: LACTULOSE
  8. RIFAXIMIN [Concomitant]
     Active Substance: RIFAXIMIN
  9. METFORMIN HYDROCHLORIDE [Concomitant]
     Active Substance: METFORMIN HYDROCHLORIDE
  10. HUMULIN R [Concomitant]
     Active Substance: INSULIN HUMAN
     Dosage: 15 IU, 2X/DAY

REACTIONS (3)
  - Drug interaction [Recovered/Resolved]
  - Atrioventricular block complete [Recovered/Resolved]
  - Cardiogenic shock [Recovered/Resolved]
